FAERS Safety Report 7054998-6 (Version None)
Quarter: 2010Q4

REPORT INFORMATION
  Report Type: 
  Country: None (occurrence: None)
  Receive Date: 20101021
  Receipt Date: 20100715
  Transmission Date: 20110411
  Serious: Yes (Hospitalization)
  Sender: FDA-Public Use
  Company Number: US-BAYER-201013304NA

PATIENT
  Age: 27 Year
  Sex: Female
  Weight: 61 kg

DRUGS (3)
  1. YAZ [Suspect]
     Indication: PRODUCT USED FOR UNKNOWN INDICATION
     Dosage: PHARMACY RECORDS: YAZ DISPENSED ON 27 MAR 2008, 09 JUL 2008, 25 SEP 2008, 25 DEC 2008, 23 MAR 2009.
     Route: 048
     Dates: start: 20080301, end: 20090601
  2. WOMEN'S ONCE-A-DAY [Concomitant]
     Route: 065
     Dates: start: 20080601, end: 20080901
  3. ASCORBIC ACID [Concomitant]
     Route: 065
     Dates: start: 20080601, end: 20080901

REACTIONS (4)
  - CHOLECYSTITIS CHRONIC [None]
  - CHOLELITHIASIS [None]
  - DYSPEPSIA [None]
  - GALLBLADDER CHOLESTEROLOSIS [None]
